FAERS Safety Report 9451008 (Version 1)
Quarter: 2013Q3

REPORT INFORMATION
  Report Type: Spontaneous
  Country: FR (occurrence: FR)
  Receive Date: 20130809
  Receipt Date: 20130809
  Transmission Date: 20140515
  Serious: Yes (Death)
  Sender: FDA-Public Use
  Company Number: FR-ROCHE-1257561

PATIENT
  Age: 64 Year
  Sex: Female

DRUGS (7)
  1. CYMEVAN [Suspect]
     Indication: CYTOMEGALOVIRUS INFECTION
     Route: 042
     Dates: start: 20130618, end: 20130708
  2. IMIPENEM [Suspect]
     Indication: INFECTION
     Route: 042
     Dates: start: 20130626, end: 20130708
  3. DOLIPRANE [Concomitant]
  4. METHYLPREDNISOLONE [Concomitant]
  5. ULTRALEVURE [Concomitant]
  6. INEXIUM [Concomitant]
  7. CANCIDAS [Concomitant]

REACTIONS (3)
  - Leukopenia [Fatal]
  - Neutropenia [Fatal]
  - Lymphopenia [Fatal]
